FAERS Safety Report 14596364 (Version 1)
Quarter: 2018Q1

REPORT INFORMATION
  Report Type: Spontaneous
  Country: DE (occurrence: DE)
  Receive Date: 20180303
  Receipt Date: 20180303
  Transmission Date: 20180509
  Serious: Yes (Hospitalization, Other)
  Sender: FDA-Public Use
  Company Number: DE-AUROBINDO-AUR-APL-2018-010940

PATIENT
  Age: 81 Year
  Sex: Male

DRUGS (1)
  1. OXYCODONE HYDROCHLORIDE 20MG [Suspect]
     Active Substance: OXYCODONE HYDROCHLORIDE
     Indication: PAIN
     Dosage: 20 MG
     Route: 048

REACTIONS (5)
  - Tinnitus [Recovering/Resolving]
  - Tremor [Recovering/Resolving]
  - Constipation [Recovering/Resolving]
  - Anxiety [Recovering/Resolving]
  - Product substitution issue [Unknown]
